FAERS Safety Report 7593420-8 (Version None)
Quarter: 2011Q3

REPORT INFORMATION
  Report Type: 
  Country: None (occurrence: None)
  Receive Date: 20110706
  Receipt Date: 20110621
  Transmission Date: 20111222
  Serious: Yes (Other)
  Sender: FDA-Public Use
  Company Number: GB-MERCK-1106USA03274

PATIENT
  Age: 26 Year
  Sex: Female

DRUGS (5)
  1. DECADRON [Suspect]
     Indication: PROPHYLAXIS OF NAUSEA AND VOMITING
     Route: 065
  2. PROPOFOL [Concomitant]
     Route: 042
  3. SEVOFLURANE [Concomitant]
     Route: 065
  4. ONDANSETRON [Suspect]
     Indication: PROPHYLAXIS OF NAUSEA AND VOMITING
     Route: 065
  5. FENTANYL [Concomitant]
     Route: 042

REACTIONS (4)
  - MIGRAINE [None]
  - NAUSEA [None]
  - PHOTOPHOBIA [None]
  - HEADACHE [None]
